FAERS Safety Report 4576598-X (Version None)
Quarter: 2005Q1

REPORT INFORMATION
  Report Type: 
  Country: None (occurrence: None)
  Receive Date: 20050127
  Receipt Date: 20041005
  Transmission Date: 20050727
  Serious: No
  Sender: FDA-Public Use
  Company Number: USA041080049

PATIENT
  Age: 24 Year
  Sex: Male
  Weight: 75 kg

DRUGS (2)
  1. STRATTERA [Suspect]
     Indication: ATTENTION DEFICIT/HYPERACTIVITY DISORDER
     Dosage: 25 MG DAY
  2. LIPITOR [Concomitant]

REACTIONS (7)
  - DRUG INEFFECTIVE [None]
  - GENITAL DISORDER MALE [None]
  - HEART RATE INCREASED [None]
  - HEART RATE IRREGULAR [None]
  - INSOMNIA [None]
  - PALPITATIONS [None]
  - URINARY HESITATION [None]
